FAERS Safety Report 23773583 (Version 1)
Quarter: 2024Q2

REPORT INFORMATION
  Report Type: Spontaneous
  Country: FR (occurrence: FR)
  Receive Date: 20240423
  Receipt Date: 20240423
  Transmission Date: 20240716
  Serious: Yes (Death)
  Sender: FDA-Public Use
  Company Number: FR-AMGEN-FRASP2024078482

PATIENT

DRUGS (1)
  1. ADALIMUMAB [Suspect]
     Active Substance: ADALIMUMAB\ISOPROPYL ALCOHOL
     Indication: Exposure during pregnancy
     Dosage: UNK
     Route: 064

REACTIONS (7)
  - Stillbirth [Fatal]
  - Large for dates baby [Unknown]
  - Premature baby [Unknown]
  - Small for dates baby [Unknown]
  - Large for dates baby [Unknown]
  - Low birth weight baby [Unknown]
  - Foetal exposure during pregnancy [Unknown]
